FAERS Safety Report 18756927 (Version 1)
Quarter: 2021Q1

REPORT INFORMATION
  Report Type: Spontaneous
  Country: US (occurrence: US)
  Receive Date: 20210119
  Receipt Date: 20210119
  Transmission Date: 20210419
  Serious: Yes (Other)
  Sender: FDA-Public Use
  Company Number: None

PATIENT
  Age: 69 Year
  Sex: Male
  Weight: 69.75 kg

DRUGS (14)
  1. ASCORBIC ACID MULTIVITAMIN [Concomitant]
  2. FAMOTIDINE. [Concomitant]
     Active Substance: FAMOTIDINE
     Dates: start: 20200421
  3. ASPIRIN. [Concomitant]
     Active Substance: ASPIRIN
  4. OMEPRAZOLE. [Concomitant]
     Active Substance: OMEPRAZOLE
     Dates: start: 20200609
  5. NAPROXEN. [Concomitant]
     Active Substance: NAPROXEN
     Dates: start: 20201130
  6. HYDROCHLOROTHIAZIDE. [Concomitant]
     Active Substance: HYDROCHLOROTHIAZIDE
     Dates: start: 20200702
  7. LOSARTAN. [Concomitant]
     Active Substance: LOSARTAN
     Dates: start: 20200702
  8. AMOXICILLIN. [Concomitant]
     Active Substance: AMOXICILLIN
     Dates: start: 20200630
  9. DOXYCYLINE MONOHYDRATE [Concomitant]
     Dates: start: 20201203
  10. BAMLANIVIMAB. [Suspect]
     Active Substance: BAMLANIVIMAB
     Indication: COVID-19
     Dosage: ?          OTHER FREQUENCY:ONCE;?
     Route: 042
     Dates: start: 20210113, end: 20210113
  11. TAMSULOSIN [Concomitant]
     Active Substance: TAMSULOSIN
     Dates: start: 20200707
  12. NITROGLYCERIN SUBLINGUAL [Concomitant]
     Active Substance: NITROGLYCERIN
     Dates: start: 20200908
  13. ATORVASTATIN [Concomitant]
     Active Substance: ATORVASTATIN
     Dates: start: 20200702
  14. CARVEDILOL. [Concomitant]
     Active Substance: CARVEDILOL
     Dates: start: 20200702

REACTIONS (4)
  - Dyspnoea [None]
  - Dizziness [None]
  - Chest discomfort [None]
  - Asthenia [None]

NARRATIVE: CASE EVENT DATE: 20210115
